FAERS Safety Report 6970528-9 (Version None)
Quarter: 2010Q3

REPORT INFORMATION
  Report Type: 
  Country: None (occurrence: None)
  Receive Date: 20100908
  Receipt Date: 20100903
  Transmission Date: 20110219
  Serious: Yes (Other)
  Sender: FDA-Public Use
  Company Number: KR-ROCHE-718204

PATIENT
  Age: 53 Year
  Sex: Female

DRUGS (2)
  1. BONIVA [Suspect]
     Indication: OSTEOPOROSIS
     Route: 048
     Dates: start: 20100602
  2. CALCIUM [Concomitant]

REACTIONS (2)
  - BONE PAIN [None]
  - MYALGIA [None]
